FAERS Safety Report 24420653 (Version 2)
Quarter: 2024Q4

REPORT INFORMATION
  Report Type: Spontaneous
  Country: BR (occurrence: BR)
  Receive Date: 20241010
  Receipt Date: 20241018
  Transmission Date: 20250115
  Serious: No
  Sender: ROCHE
  Company Number: BR-BoehringerIngelheim-2024-BI-023980

PATIENT
  Age: 91 Year

DRUGS (1)
  1. ALTEPLASE [Suspect]
     Active Substance: ALTEPLASE
     Indication: Ischaemic stroke
     Dosage: DOSE USED 0.6 MILLIGRAMS/KILOGRAM.
     Route: 065

REACTIONS (2)
  - Arterial occlusive disease [Unknown]
  - Dose calculation error [Unknown]
